FAERS Safety Report 18115793 (Version 1)
Quarter: 2020Q3

REPORT INFORMATION
  Report Type: Spontaneous
  Country: US (occurrence: US)
  Receive Date: 20200805
  Receipt Date: 20200805
  Transmission Date: 20201103
  Serious: No
  Sender: FDA-Public Use
  Company Number: US-TAKEDA-2020TUS033470

PATIENT
  Sex: Male

DRUGS (2)
  1. DEXILANT [Suspect]
     Active Substance: DEXLANSOPRAZOLE
     Dosage: 60 MILLIGRAM, QD
     Route: 065
  2. DEXILANT [Suspect]
     Active Substance: DEXLANSOPRAZOLE
     Indication: APHASIA
     Dosage: 60 MILLIGRAM, BID
     Route: 065

REACTIONS (4)
  - Off label use [Unknown]
  - Overdose [Unknown]
  - Therapy interrupted [Unknown]
  - Abdominal pain upper [Unknown]
